FAERS Safety Report 8434848-3 (Version None)
Quarter: 2012Q2

REPORT INFORMATION
  Report Type: 
  Country: None (occurrence: None)
  Receive Date: 20120614
  Receipt Date: 20120605
  Transmission Date: 20120825
  Serious: Yes (Other)
  Sender: FDA-Public Use
  Company Number: US-JNJFOC-20120603744

PATIENT

DRUGS (20)
  1. DOXORUBICIN HCL [Suspect]
     Indication: B-CELL LYMPHOMA
     Route: 042
  2. CYCLOPHOSPHAMIDE [Suspect]
     Route: 065
  3. PREDNISONE TAB [Suspect]
     Indication: B-CELL LYMPHOMA
     Route: 065
  4. DOXORUBICIN HCL [Suspect]
     Route: 042
  5. RITUXIMAB [Suspect]
     Indication: DIFFUSE LARGE B-CELL LYMPHOMA
     Dosage: FIRST INFUSION ADMINISTERED AT 50 MG/HR; IN ABSENCE OF TOXICITY INCREASED BY 50 MG HR
     Route: 042
  6. RITUXIMAB [Suspect]
     Dosage: FASTER INFUSION; 20% OVER 30 MIN AND 80% OVER 60 MINS.
     Route: 042
  7. CYCLOPHOSPHAMIDE [Suspect]
     Indication: DIFFUSE LARGE B-CELL LYMPHOMA
     Route: 065
  8. RITUXIMAB [Suspect]
     Indication: B-CELL LYMPHOMA
     Dosage: FIRST INFUSION ADMINISTERED AT 50 MG/HR; IN ABSENCE OF TOXICITY INCREASED BY 50 MG HR
     Route: 042
  9. PREDNISONE TAB [Suspect]
     Indication: DIFFUSE LARGE B-CELL LYMPHOMA
     Route: 065
  10. PREDNISONE TAB [Suspect]
     Route: 065
  11. VINCRISTINE [Suspect]
     Indication: B-CELL LYMPHOMA
     Route: 065
  12. VINCRISTINE [Suspect]
     Route: 065
  13. VINCRISTINE [Suspect]
     Route: 065
  14. VINCRISTINE [Suspect]
     Indication: DIFFUSE LARGE B-CELL LYMPHOMA
     Route: 065
  15. RITUXIMAB [Suspect]
     Dosage: FASTER INFUSION; 20% OVER 30 MIN AND 80% OVER 60 MINS.
     Route: 042
  16. CYCLOPHOSPHAMIDE [Suspect]
     Indication: B-CELL LYMPHOMA
     Route: 065
  17. DOXORUBICIN HCL [Suspect]
     Indication: DIFFUSE LARGE B-CELL LYMPHOMA
     Route: 042
  18. CYCLOPHOSPHAMIDE [Suspect]
     Route: 065
  19. DOXORUBICIN HCL [Suspect]
     Route: 042
  20. PREDNISONE TAB [Suspect]
     Route: 065

REACTIONS (2)
  - ABDOMINAL PAIN [None]
  - INFUSION RELATED REACTION [None]
